FAERS Safety Report 21274440 (Version 1)
Quarter: 2022Q3

REPORT INFORMATION
  Report Type: Spontaneous
  Country: US (occurrence: US)
  Receive Date: 20220831
  Receipt Date: 20220831
  Transmission Date: 20221027
  Serious: Yes (Hospitalization)
  Sender: FDA-Public Use
  Company Number: US-NOVARTISPH-NVSC2022US195220

PATIENT
  Age: 57 Year
  Sex: Male

DRUGS (1)
  1. CEFTRIAXONE [Suspect]
     Active Substance: CEFTRIAXONE
     Indication: Pasteurella infection
     Dosage: UNK (VIA PERIPHERALLY INSERTED CENTRAL CATHETER FOR 6 WEEKS)
     Route: 065

REACTIONS (1)
  - Immune thrombocytopenia [Recovered/Resolved]
